FAERS Safety Report 9125288 (Version 2)
Quarter: 2013Q2

REPORT INFORMATION
  Report Type: Report from Study
  Country: SI (occurrence: SI)
  Receive Date: 20130121
  Receipt Date: 20130423
  Transmission Date: 20140414
  Serious: Yes (Death)
  Sender: FDA-Public Use
  Company Number: SI-AMGEN-SVNNI2013002642

PATIENT
  Age: 60 Year
  Sex: 0

DRUGS (3)
  1. PEGFILGRASTIM [Suspect]
     Indication: FEBRILE NEUTROPENIA
     Dosage: UNK
     Dates: end: 20120209
  2. PIPERACILLIN + TAZOBACTAM [Concomitant]
     Dosage: UNK
     Route: 051
     Dates: end: 20130417
  3. CONET [Concomitant]
     Dosage: UNK
     Dates: end: 20120417

REACTIONS (3)
  - Cardio-respiratory arrest [Fatal]
  - Diarrhoea [Recovered/Resolved]
  - Leukocytosis [Not Recovered/Not Resolved]
